FAERS Safety Report 6771750-7 (Version None)
Quarter: 2010Q2

REPORT INFORMATION
  Report Type: 
  Country: None (occurrence: None)
  Receive Date: 20100616
  Receipt Date: 20090616
  Transmission Date: 20101027
  Serious: No
  Sender: FDA-Public Use
  Company Number: US-ASTRAZENECA-2009UW08922

PATIENT
  Age: 62 Year
  Sex: Female
  Weight: 50.8 kg

DRUGS (3)
  1. ATACAND [Suspect]
     Indication: HYPERTENSION
     Route: 048
     Dates: start: 20060101, end: 20080101
  2. ATACAND [Suspect]
     Route: 048
     Dates: start: 20080101
  3. ACTONEL [Concomitant]
     Dosage: THREE DOSES

REACTIONS (3)
  - PRODUCT QUALITY ISSUE [None]
  - RASH [None]
  - WRONG TECHNIQUE IN DRUG USAGE PROCESS [None]
